FAERS Safety Report 8302656-X (Version None)
Quarter: 2012Q2

REPORT INFORMATION
  Report Type: 
  Country: None (occurrence: None)
  Receive Date: 20120420
  Receipt Date: 20120409
  Transmission Date: 20120825
  Serious: Yes (Hospitalization, Other)
  Sender: FDA-Public Use
  Company Number: US-ELI_LILLY_AND_COMPANY-US200906001811

PATIENT
  Sex: Male

DRUGS (9)
  1. LANTUS [Concomitant]
  2. CARVEDILOL [Concomitant]
     Dosage: 25 MG, QD
  3. HUMALOG [Suspect]
     Dosage: UNK UNK, UNKNOWN
     Dates: start: 20060101
  4. HUMULIN R [Suspect]
     Indication: DIABETES MELLITUS
     Dosage: UNK, UNKNOWN
     Dates: start: 19650101
  5. LISINOPRIL [Concomitant]
     Dosage: 20 MG, BID
  6. CLARITIN [Concomitant]
     Indication: SEASONAL ALLERGY
     Dosage: UNK
  7. HUMALOG [Suspect]
     Indication: TYPE 1 DIABETES MELLITUS
     Dosage: UNK UNK, UNKNOWN
     Dates: start: 20060101
  8. HYDROCHLOROTHIAZIDE [Concomitant]
     Dosage: 12.5 MG, BID
  9. ASPIRIN [Concomitant]
     Dosage: 165 MG, UNKNOWN

REACTIONS (5)
  - CEREBROVASCULAR ACCIDENT [None]
  - HEMIPARESIS [None]
  - ADVERSE EVENT [None]
  - MEMORY IMPAIRMENT [None]
  - THROMBOSIS [None]
